FAERS Safety Report 9012692 (Version 2)
Quarter: 2013Q2

REPORT INFORMATION
  Report Type: Spontaneous
  Country: US (occurrence: US)
  Receive Date: 20130114
  Receipt Date: 20130419
  Transmission Date: 20140414
  Serious: No
  Sender: FDA-Public Use
  Company Number: US-009507513-1301USA003998

PATIENT
  Age: 30 Year
  Sex: Female
  Weight: 73.92 kg

DRUGS (3)
  1. NEXPLANON [Suspect]
     Indication: CONTRACEPTION
     Dosage: 1 ROD EVERY 3 YEARS
     Dates: start: 20121210, end: 20121221
  2. NEXPLANON [Suspect]
     Dosage: 1 DF, UNK
     Route: 059
  3. PROTONIX [Concomitant]

REACTIONS (4)
  - Application site discomfort [Recovered/Resolved]
  - Implant site pain [Recovered/Resolved]
  - Implant site irritation [Recovered/Resolved]
  - Device deployment issue [Recovered/Resolved]
